FAERS Safety Report 16710563 (Version 1)
Quarter: 2019Q4

REPORT INFORMATION
  Report Type: Spontaneous
  Country: US (occurrence: US)
  Receive Date: 20190815
  Receipt Date: 20190815
  Transmission Date: 20200122
  Serious: Yes (Life-Threatening, Hospitalization, Other)
  Sender: FDA-Public Use
  Company Number: None

PATIENT
  Age: 64 Year
  Sex: Female
  Weight: 82.8 kg

DRUGS (20)
  1. RANITIDINE. [Concomitant]
     Active Substance: RANITIDINE
  2. ROPINEROLE [Concomitant]
     Active Substance: ROPINIROLE
  3. PANTOPRAZOLE SOD DR [Concomitant]
     Active Substance: PANTOPRAZOLE SODIUM
  4. LANTUS [Concomitant]
     Active Substance: INSULIN GLARGINE
  5. LOSARTAN POTASSIUM. [Concomitant]
     Active Substance: LOSARTAN POTASSIUM
  6. VITAMIN D [Concomitant]
     Active Substance: VITAMIN D NOS
  7. HYDROCHLOROTHIAZIDE. [Concomitant]
     Active Substance: HYDROCHLOROTHIAZIDE
  8. DULOXETINE HCL [Concomitant]
     Active Substance: DULOXETINE HYDROCHLORIDE
  9. AMLODIPINE BESYLATE. [Concomitant]
     Active Substance: AMLODIPINE BESYLATE
  10. TIZANIDINE HCL [Concomitant]
     Active Substance: TIZANIDINE HYDROCHLORIDE
  11. GABAPENTIN. [Concomitant]
     Active Substance: GABAPENTIN
  12. IMODIUM [Concomitant]
     Active Substance: LOPERAMIDE HYDROCHLORIDE
  13. SIMVASTATIN. [Concomitant]
     Active Substance: SIMVASTATIN
  14. FLUCONAZOLE. [Concomitant]
     Active Substance: FLUCONAZOLE
  15. LANTUS SOLOSTAR [Suspect]
     Active Substance: INSULIN GLARGINE
     Indication: TYPE 2 DIABETES MELLITUS
     Dosage: ?          QUANTITY:62 UNITS;?
     Route: 058
  16. SULFAMETHOXAZOLE-TMP SS [Concomitant]
  17. PIOGLITAZONE HCL [Concomitant]
     Active Substance: PIOGLITAZONE
  18. COD LIVER OIL [Concomitant]
     Active Substance: COD LIVER OIL
  19. SOLOSTAR [Concomitant]
     Active Substance: DEVICE
  20. JANUVIA [Concomitant]
     Active Substance: SITAGLIPTIN PHOSPHATE

REACTIONS (6)
  - Blood glucose decreased [None]
  - Road traffic accident [None]
  - Loss of consciousness [None]
  - Blood potassium decreased [None]
  - Suspected product contamination [None]
  - Product quality issue [None]

NARRATIVE: CASE EVENT DATE: 20190813
